FAERS Safety Report 7653636-9 (Version None)
Quarter: 2011Q3

REPORT INFORMATION
  Report Type: 
  Country: None (occurrence: None)
  Receive Date: 20110803
  Receipt Date: 20110803
  Transmission Date: 20111222
  Serious: No
  Sender: FDA-Public Use
  Company Number: None

PATIENT
  Age: 35 Year
  Sex: Male
  Weight: 90.718 kg

DRUGS (1)
  1. CLOZAPINE [Suspect]
     Dosage: 300 MG
     Route: 048

REACTIONS (1)
  - SALIVARY HYPERSECRETION [None]
